FAERS Safety Report 9690651 (Version 1)
Quarter: 2013Q4

REPORT INFORMATION
  Report Type: Spontaneous
  Country: US (occurrence: US)
  Receive Date: 20131115
  Receipt Date: 20131115
  Transmission Date: 20140711
  Serious: No
  Sender: FDA-Public Use
  Company Number: US-BAXTER-2013BAX043618

PATIENT
  Sex: Female

DRUGS (1)
  1. DIANEAL LOW CALCIUM [Suspect]
     Indication: ACCIDENTAL EXPOSURE TO PRODUCT
     Route: 065
     Dates: start: 20131031

REACTIONS (6)
  - Accidental exposure to product [Unknown]
  - Dizziness [Unknown]
  - Feeling abnormal [Unknown]
  - Sensitisation [Unknown]
  - Nausea [Unknown]
  - Abdominal discomfort [Unknown]
